FAERS Safety Report 18309247 (Version 1)
Quarter: 2020Q3

REPORT INFORMATION
  Report Type: Spontaneous
  Country: CA (occurrence: CA)
  Receive Date: 20200924
  Receipt Date: 20200924
  Transmission Date: 20201103
  Serious: Yes (Other)
  Sender: FDA-Public Use
  Company Number: CA-TEVA-476157USA

PATIENT
  Age: 56 Year
  Sex: Female

DRUGS (3)
  1. METHOTREXATE. [Suspect]
     Active Substance: METHOTREXATE
     Indication: DERMATITIS ATOPIC
     Dosage: 15 MILLIGRAM DAILY; (CUMULATIVE DOSAGE 105MG OVER ONE WEEK, WHICH WAS HIGHER THAN THE PRESCRIBED DOS
     Route: 048
  2. FUROSEMIDE. [Interacting]
     Active Substance: FUROSEMIDE
     Indication: CARDIAC FAILURE CONGESTIVE
     Route: 065
  3. METHOTREXATE. [Interacting]
     Active Substance: METHOTREXATE
     Indication: DERMATITIS EXFOLIATIVE GENERALISED

REACTIONS (6)
  - Drug interaction [Unknown]
  - Accidental overdose [Unknown]
  - Incorrect dose administered [Unknown]
  - Neutropenia [Recovered/Resolved]
  - Pancytopenia [Unknown]
  - Skin necrosis [Recovered/Resolved]
